FAERS Safety Report 21683782 (Version 1)
Quarter: 2022Q4

REPORT INFORMATION
  Report Type: Spontaneous
  Country: US (occurrence: None)
  Receive Date: 20221203
  Receipt Date: 20221203
  Transmission Date: 20230113
  Serious: Yes (Hospitalization)
  Sender: FDA-Public Use
  Company Number: None

PATIENT
  Sex: Female

DRUGS (1)
  1. HUMIRA [Suspect]
     Active Substance: ADALIMUMAB
     Indication: Crohn^s disease
     Dosage: OTHER FREQUENCY : EVERY 14 DAYS;?
     Route: 058
     Dates: start: 20180206

REACTIONS (7)
  - Condition aggravated [None]
  - Abdominal pain [None]
  - Diarrhoea [None]
  - Weight abnormal [None]
  - Impaired quality of life [None]
  - Therapy interrupted [None]
  - Infection [None]
